FAERS Safety Report 8806573 (Version 2)
Quarter: 2012Q4

REPORT INFORMATION
  Report Type: 
  Country: US (occurrence: US)
  Receive Date: 20120925
  Receipt Date: 20121004
  Transmission Date: 20130627
  Serious: Yes (Other)
  Sender: FDA-Public Use
  Company Number: US-ELI_LILLY_AND_COMPANY-US201209004393

PATIENT
  Sex: Female

DRUGS (1)
  1. HUMALOG LISPRO [Suspect]
     Indication: DIABETES MELLITUS
     Dosage: UNK, prn
     Dates: start: 2011

REACTIONS (5)
  - Hypoglycaemic unconsciousness [Unknown]
  - Hypertension [Unknown]
  - Dizziness [Unknown]
  - Blood glucose increased [Unknown]
  - Medication error [Unknown]
